FAERS Safety Report 6310705-3 (Version None)
Quarter: 2009Q3

REPORT INFORMATION
  Report Type: 
  Country: None (occurrence: None)
  Receive Date: 20090814
  Receipt Date: 20090804
  Transmission Date: 20100115
  Serious: Yes (Hospitalization, Disabling)
  Sender: FDA-Public Use
  Company Number: PR-MERCK-0805USA02782

PATIENT
  Age: 61 Year
  Sex: Female

DRUGS (3)
  1. FOSAMAX [Suspect]
     Indication: OSTEOPOROSIS
     Route: 048
     Dates: start: 19970101, end: 20060101
  2. OGEN [Concomitant]
     Indication: HYSTERECTOMY
     Route: 065
     Dates: start: 19930101, end: 20050101
  3. OGEN [Concomitant]
     Indication: HORMONE REPLACEMENT THERAPY
     Route: 065
     Dates: start: 19930101, end: 20050101

REACTIONS (14)
  - APICAL GRANULOMA [None]
  - BONE ATROPHY [None]
  - BONE DISORDER [None]
  - GINGIVAL BLEEDING [None]
  - GINGIVAL SWELLING [None]
  - IMPAIRED HEALING [None]
  - INFECTION [None]
  - JAW DISORDER [None]
  - LOOSE TOOTH [None]
  - ORAL INFECTION [None]
  - PERIODONTITIS [None]
  - RESORPTION BONE INCREASED [None]
  - TOOTH INFECTION [None]
  - TOOTH LOSS [None]
